FAERS Safety Report 21955539 (Version 2)
Quarter: 2023Q1

REPORT INFORMATION
  Report Type: Report from Study
  Country: US (occurrence: US)
  Receive Date: 20230206
  Receipt Date: 20230207
  Transmission Date: 20230418
  Serious: Yes (Hospitalization, Other)
  Sender: FDA-Public Use
  Company Number: US-ABBVIE-4294483

PATIENT
  Sex: Female
  Weight: 74.842 kg

DRUGS (2)
  1. RINVOQ [Suspect]
     Active Substance: UPADACITINIB
     Indication: Rheumatoid arthritis
     Dosage: DRUG START DATE WAS 04 AUG 2022.
     Route: 048
     Dates: end: 20220804
  2. VITAMIN D5 [Concomitant]
     Indication: Renal disorder

REACTIONS (7)
  - Chest pain [Recovered/Resolved]
  - Vomiting [Recovered/Resolved]
  - Vein rupture [Unknown]
  - Dyspnoea [Unknown]
  - Hypertension [Recovered/Resolved]
  - Hyperhidrosis [Recovered/Resolved]
  - Nausea [Recovered/Resolved]

NARRATIVE: CASE EVENT DATE: 20220101
